FAERS Safety Report 10637085 (Version 5)
Quarter: 2015Q3

REPORT INFORMATION
  Report Type: Report from Study
  Country: AU (occurrence: AU)
  Receive Date: 20141208
  Receipt Date: 20150715
  Transmission Date: 20151125
  Serious: Yes (Disabling, Other)
  Sender: FDA-Public Use
  Company Number: AU-CELGENE-008-C5013-13061762

PATIENT
  Age: 54 Year
  Sex: Male
  Weight: 73.3 kg

DRUGS (9)
  1. INTRAGRAM [Concomitant]
     Indication: HYPOGAMMAGLOBULINAEMIA
     Route: 041
     Dates: start: 2005
  2. TILADE [Concomitant]
     Active Substance: NEDOCROMIL SODIUM
     Indication: COUGH
     Dosage: X2PUFFS
     Route: 065
     Dates: start: 20130411
  3. CC-5013 [Suspect]
     Active Substance: LENALIDOMIDE
     Indication: CHRONIC LYMPHOCYTIC LEUKAEMIA
     Route: 048
     Dates: start: 20121203
  4. CC-5013 [Suspect]
     Active Substance: LENALIDOMIDE
     Route: 048
     Dates: end: 20130502
  5. NEXIUM [Concomitant]
     Active Substance: ESOMEPRAZOLE MAGNESIUM
     Indication: GASTROOESOPHAGEAL REFLUX DISEASE
     Route: 065
     Dates: start: 2003
  6. AUGMENTIN [Concomitant]
     Active Substance: AMOXICILLIN\CLAVULANATE POTASSIUM
     Indication: COUGH
     Dosage: 1.1 GRAM
     Route: 065
     Dates: start: 20130411
  7. CC-5013 [Suspect]
     Active Substance: LENALIDOMIDE
     Route: 048
     Dates: end: 20130606
  8. VALMIR [Concomitant]
     Indication: ORAL HERPES
     Route: 065
     Dates: start: 20130226, end: 20130304
  9. ALLOPURINOL. [Concomitant]
     Active Substance: ALLOPURINOL
     Indication: PRODUCT USED FOR UNKNOWN INDICATION
     Route: 065
     Dates: end: 20130411

REACTIONS (1)
  - Demyelination [Not Recovered/Not Resolved]

NARRATIVE: CASE EVENT DATE: 20130424
